FAERS Safety Report 7921034-6 (Version None)
Quarter: 2011Q4

REPORT INFORMATION
  Report Type: 
  Country: None (occurrence: None)
  Receive Date: 20111117
  Receipt Date: 20111115
  Transmission Date: 20120403
  Serious: Yes (Other)
  Sender: FDA-Public Use
  Company Number: US-PFIZER INC-2010134738

PATIENT
  Sex: Male

DRUGS (2)
  1. SUTENT [Suspect]
     Dosage: 25 MG, CYCLIC
     Dates: start: 20110907, end: 20111001
  2. SUTENT [Suspect]
     Indication: METASTATIC RENAL CELL CARCINOMA
     Dosage: 50 MG, 1X/DAY, X 28 DAYS EVERY 42 DAYS
     Dates: start: 20100907, end: 20100928

REACTIONS (2)
  - BRONCHITIS [None]
  - VERTIGO [None]
